FAERS Safety Report 12821306 (Version 1)
Quarter: 2016Q4

REPORT INFORMATION
  Report Type: Report from Study
  Country: CA (occurrence: CA)
  Receive Date: 20161007
  Receipt Date: 20161007
  Transmission Date: 20170207
  Serious: Yes (Other)
  Sender: FDA-Public Use
  Company Number: CA-ROCHE-1833175

PATIENT
  Age: 67 Year
  Sex: Female
  Weight: 84.5 kg

DRUGS (6)
  1. BEVACIZUMAB [Suspect]
     Active Substance: BEVACIZUMAB
     Indication: OVARIAN NEOPLASM
     Dosage: COURSE 1
     Route: 042
     Dates: start: 20110126
  2. BEVACIZUMAB [Suspect]
     Active Substance: BEVACIZUMAB
     Dosage: COURSE 3
     Route: 042
     Dates: start: 20110329
  3. TEMSIROLIMUS [Suspect]
     Active Substance: TEMSIROLIMUS
     Dosage: COURSE 2
     Route: 042
     Dates: start: 20110222
  4. BEVACIZUMAB [Suspect]
     Active Substance: BEVACIZUMAB
     Dosage: COURSE 2
     Route: 042
     Dates: start: 20110222
  5. TEMSIROLIMUS [Suspect]
     Active Substance: TEMSIROLIMUS
     Indication: OVARIAN NEOPLASM
     Dosage: COURSE 1
     Route: 042
     Dates: start: 20110126
  6. TEMSIROLIMUS [Suspect]
     Active Substance: TEMSIROLIMUS
     Dosage: COURSE 3
     Route: 042
     Dates: start: 20110329

REACTIONS (3)
  - Sinus disorder [Unknown]
  - Hypertension [Unknown]
  - Platelet count decreased [Unknown]
